FAERS Safety Report 5753836-9 (Version None)
Quarter: 2008Q2

REPORT INFORMATION
  Report Type: 
  Country: None (occurrence: None)
  Receive Date: 20080530
  Receipt Date: 20080521
  Transmission Date: 20081010
  Serious: Yes (Other)
  Sender: FDA-Public Use
  Company Number: US-GILEAD-2008-0016454

PATIENT
  Sex: Male
  Weight: 48.6 kg

DRUGS (3)
  1. TRUVADA [Suspect]
     Indication: HIV INFECTION
     Route: 048
     Dates: start: 20080319, end: 20080429
  2. SUSTIVA [Concomitant]
     Indication: HIV INFECTION
     Route: 048
     Dates: start: 20080319, end: 20080429
  3. FUZEON [Concomitant]
     Indication: HIV INFECTION
     Route: 050
     Dates: start: 20080328, end: 20080429

REACTIONS (5)
  - GLOSSITIS [None]
  - ORAL CANDIDIASIS [None]
  - PYREXIA [None]
  - RASH [None]
  - STEVENS-JOHNSON SYNDROME [None]
